FAERS Safety Report 10252663 (Version 1)
Quarter: 2014Q2

REPORT INFORMATION
  Report Type: Spontaneous
  Country: US (occurrence: US)
  Receive Date: 20140623
  Receipt Date: 20140623
  Transmission Date: 20141212
  Serious: No
  Sender: FDA-Public Use
  Company Number: US-AMGEN INC.-USASP2014045851

PATIENT
  Age: 57 Year
  Sex: Female

DRUGS (1)
  1. ENBREL [Suspect]
     Indication: INFLAMMATION
     Dosage: 50 MG, QWK
     Route: 058
     Dates: start: 20140327

REACTIONS (1)
  - Nasopharyngitis [Unknown]
